FAERS Safety Report 13654938 (Version 3)
Quarter: 2019Q3

REPORT INFORMATION
  Report Type: Spontaneous
  Country: US (occurrence: US)
  Receive Date: 20170615
  Receipt Date: 20190814
  Transmission Date: 20191004
  Serious: Yes (Other)
  Sender: FDA-Public Use
  Company Number: US-ASTRAZENECA-2017SE61261

PATIENT
  Age: 22093 Day
  Sex: Female
  Weight: 68.7 kg

DRUGS (36)
  1. NEXIUM [Suspect]
     Active Substance: ESOMEPRAZOLE MAGNESIUM
     Indication: GASTRIC PH DECREASED
     Route: 048
     Dates: start: 2012, end: 2016
  2. PRILOSEC [Suspect]
     Active Substance: OMEPRAZOLE MAGNESIUM
     Indication: GASTRIC PH DECREASED
     Route: 048
  3. PRILOSEC [Suspect]
     Active Substance: OMEPRAZOLE MAGNESIUM
     Indication: GASTRIC PH DECREASED
     Dosage: GENERIC
     Route: 065
     Dates: start: 2012, end: 2016
  4. MSIR [Concomitant]
     Active Substance: MORPHINE SULFATE
     Dosage: 1 CC AS NEEDED AS REQUIRED
  5. PANCREASE MT [Concomitant]
     Active Substance: PANCRELIPASE
     Dosage: 3 CAPSULES WITH MEAL, 2 WITH SNACKS
     Dates: start: 20080131
  6. TRAZODONE HYDROCHLORIDE. [Concomitant]
     Active Substance: TRAZODONE HYDROCHLORIDE
     Route: 048
     Dates: start: 20160901
  7. CLONAZEPAM. [Concomitant]
     Active Substance: CLONAZEPAM
     Dosage: 1 ORAL, TWO TIMES DAILY, AS NEEDED
     Route: 048
     Dates: start: 20121008
  8. NEXIUM [Suspect]
     Active Substance: ESOMEPRAZOLE MAGNESIUM
     Indication: GASTRIC PH DECREASED
     Route: 048
     Dates: start: 20090331
  9. HUMALOG [Concomitant]
     Active Substance: INSULIN LISPRO
     Dosage: 1 UNIT FOR 7 CARDS
     Dates: start: 20080131
  10. HUMALIN N [Concomitant]
     Dates: start: 20080131, end: 20090331
  11. PROVIGIL [Concomitant]
     Active Substance: MODAFINIL
     Dosage: 200.0MG AS REQUIRED
     Dates: start: 20080131
  12. FERROUS FUMARATE [Concomitant]
     Active Substance: FERROUS FUMARATE
     Route: 048
     Dates: start: 20160901
  13. MIRTAZAPINE. [Concomitant]
     Active Substance: MIRTAZAPINE
     Route: 048
     Dates: start: 20160901
  14. TIGAN [Concomitant]
     Active Substance: TRIMETHOBENZAMIDE HYDROCHLORIDE
     Dosage: 300.0MG AS REQUIRED
     Dates: start: 20080131
  15. ZOLPIDEM [Concomitant]
     Active Substance: ZOLPIDEM TARTRATE
     Route: 048
     Dates: start: 20160901
  16. NEXIUM [Suspect]
     Active Substance: ESOMEPRAZOLE MAGNESIUM
     Indication: GASTROOESOPHAGEAL REFLUX DISEASE
     Route: 048
     Dates: start: 20090331
  17. NEXIUM [Suspect]
     Active Substance: ESOMEPRAZOLE MAGNESIUM
     Indication: GASTRIC PH DECREASED
     Route: 048
     Dates: start: 20121008
  18. PRILOSEC [Suspect]
     Active Substance: OMEPRAZOLE MAGNESIUM
     Indication: GASTROOESOPHAGEAL REFLUX DISEASE
     Route: 048
     Dates: start: 20121010
  19. CREON [Concomitant]
     Active Substance: PANCRELIPASE AMYLASE\PANCRELIPASE LIPASE\PANCRELIPASE PROTEASE
     Dosage: 10, 6 WITH MEALS3000-9500 UNIT
     Route: 048
     Dates: start: 20100305
  20. DURAGESIC [Concomitant]
     Active Substance: FENTANYL
     Dosage: 50 MG,75 HRS, EVERY 3 DAYS
     Dates: start: 20090331
  21. GEODON [Concomitant]
     Active Substance: ZIPRASIDONE HYDROCHLORIDE\ZIPRASIDONE MESYLATE
     Dates: start: 20080131
  22. FENTANYL. [Concomitant]
     Active Substance: FENTANYL
     Route: 062
     Dates: start: 20120815
  23. PRILOSEC [Suspect]
     Active Substance: OMEPRAZOLE MAGNESIUM
     Indication: GASTROOESOPHAGEAL REFLUX DISEASE
     Route: 048
  24. LEVEMIR [Concomitant]
     Active Substance: INSULIN DETEMIR
     Dosage: 15 UNITS TWICE A DAY
     Dates: start: 20090331
  25. ATIVAN [Concomitant]
     Active Substance: LORAZEPAM
     Dates: start: 20080131
  26. MORPHINE [Concomitant]
     Active Substance: MORPHINE
     Route: 048
     Dates: start: 20160901
  27. NEXIUM [Suspect]
     Active Substance: ESOMEPRAZOLE MAGNESIUM
     Indication: GASTROOESOPHAGEAL REFLUX DISEASE
     Route: 048
     Dates: start: 20121008
  28. LAMICTAL [Concomitant]
     Active Substance: LAMOTRIGINE
     Dates: start: 20090331
  29. ADVIL [Concomitant]
     Active Substance: IBUPROFEN
     Dosage: 1.0DF AS REQUIRED
     Route: 048
     Dates: start: 20160901
  30. ALENDRONATE SODIUM. [Concomitant]
     Active Substance: ALENDRONATE SODIUM
     Route: 048
     Dates: start: 20121108
  31. NEXIUM [Suspect]
     Active Substance: ESOMEPRAZOLE MAGNESIUM
     Indication: GASTROOESOPHAGEAL REFLUX DISEASE
     Route: 048
     Dates: start: 2012, end: 2016
  32. PRILOSEC [Suspect]
     Active Substance: OMEPRAZOLE MAGNESIUM
     Indication: GASTRIC PH DECREASED
     Route: 048
     Dates: start: 20121010
  33. PRILOSEC [Suspect]
     Active Substance: OMEPRAZOLE MAGNESIUM
     Indication: GASTROOESOPHAGEAL REFLUX DISEASE
     Dosage: GENERIC
     Route: 065
     Dates: start: 2012, end: 2016
  34. MSIR [Concomitant]
     Active Substance: MORPHINE SULFATE
     Dosage: 15.0MG AS REQUIRED
     Dates: start: 20080131
  35. PROZAC [Concomitant]
     Active Substance: FLUOXETINE HYDROCHLORIDE
     Dates: start: 20080131
  36. LAMOTRIGINE. [Concomitant]
     Active Substance: LAMOTRIGINE
     Route: 048
     Dates: start: 20130805

REACTIONS (5)
  - Acute kidney injury [Unknown]
  - End stage renal disease [Unknown]
  - Renal failure [Not Recovered/Not Resolved]
  - Chronic kidney disease [Unknown]
  - Tubulointerstitial nephritis [Unknown]

NARRATIVE: CASE EVENT DATE: 20160901
